FAERS Safety Report 11103478 (Version 1)
Quarter: 2015Q2

REPORT INFORMATION
  Report Type: Spontaneous
  Country: US (occurrence: None)
  Receive Date: 20150508
  Receipt Date: 20150508
  Transmission Date: 20150821
  Serious: Yes (Other)
  Sender: FDA-Public Use
  Company Number: None

PATIENT
  Age: 67 Year
  Sex: Female
  Weight: 58.97 kg

DRUGS (9)
  1. SYNTHROID [Concomitant]
     Active Substance: LEVOTHYROXINE SODIUM
  2. MAGNESIUM COMPLEX [Concomitant]
  3. VITAMIN D3 [Concomitant]
     Active Substance: CHOLECALCIFEROL
  4. SOVALDI [Suspect]
     Active Substance: SOFOSBUVIR
     Indication: HEPATITIS C
     Dosage: 1 PILL
     Route: 048
     Dates: start: 20140607, end: 20141128
  5. IRBESARTAN. [Concomitant]
     Active Substance: IRBESARTAN
  6. RIBAVIRIN 200 MG CAPSULES [Suspect]
     Active Substance: RIBAVIRIN
  7. OMEGA 3 FISH OIL [Concomitant]
     Active Substance: FISH OIL\OMEGA-3 FATTY ACIDS
  8. NOVOLOG [Concomitant]
     Active Substance: INSULIN ASPART
  9. NPH INSULIN [Concomitant]
     Active Substance: INSULIN BEEF

REACTIONS (5)
  - Balance disorder [None]
  - Pruritus [None]
  - Rash [None]
  - Abdominal distension [None]
  - Fall [None]

NARRATIVE: CASE EVENT DATE: 201411
